FAERS Safety Report 25590160 (Version 1)
Quarter: 2025Q3

REPORT INFORMATION
  Report Type: Spontaneous
  Country: EU (occurrence: EU)
  Receive Date: 20250722
  Receipt Date: 20250722
  Transmission Date: 20251021
  Serious: Yes (Hospitalization, Other)
  Sender: ACCORD
  Company Number: EU-Accord-495592

PATIENT
  Age: 1 Day
  Sex: Female
  Weight: 2.17 kg

DRUGS (1)
  1. DEXMEDETOMIDINE HYDROCHLORIDE [Suspect]
     Active Substance: DEXMEDETOMIDINE HYDROCHLORIDE

REACTIONS (10)
  - Dyspnoea [Recovered/Resolved]
  - Accidental overdose [Unknown]
  - Product administration error [Unknown]
  - Hyperglycaemia [Recovered/Resolved]
  - Blood lactic acid increased [Recovered/Resolved]
  - Electroencephalogram abnormal [Recovered/Resolved]
  - Irritability [Recovered/Resolved]
  - Hypotonia [Recovered/Resolved]
  - Apnoea [Recovered/Resolved]
  - Hypocapnia [Recovered/Resolved]
